FAERS Safety Report 9312091 (Version 1)
Quarter: 2013Q2

REPORT INFORMATION
  Report Type: Spontaneous
  Country: FI (occurrence: FI)
  Receive Date: 20130528
  Receipt Date: 20130528
  Transmission Date: 20140414
  Serious: Yes (Hospitalization)
  Sender: FDA-Public Use
  Company Number: FI-BAXTER-2013BAX018942

PATIENT
  Sex: Female

DRUGS (18)
  1. SENDOXAN 1000 MG INJEKTIOKUIVA-AINE, LIUOSTA VARTEN [Suspect]
     Indication: HODGKIN^S DISEASE
     Route: 042
     Dates: start: 20121214, end: 20130308
  2. SENDOXAN 1000 MG INJEKTIOKUIVA-AINE, LIUOSTA VARTEN [Suspect]
     Route: 042
     Dates: start: 20121018, end: 20121126
  3. SENDOXAN 1000 MG INJEKTIOKUIVA-AINE, LIUOSTA VARTEN [Suspect]
     Route: 042
     Dates: start: 20121018, end: 20130308
  4. SENDOXAN 1000 MG INJEKTIOKUIVA-AINE, LIUOSTA VARTEN [Suspect]
     Route: 042
     Dates: start: 20121018, end: 20121126
  5. SENDOXAN 1000 MG INJEKTIOKUIVA-AINE, LIUOSTA VARTEN [Suspect]
     Route: 042
     Dates: start: 20121018, end: 20121126
  6. SENDOXAN 1000 MG INJEKTIOKUIVA-AINE, LIUOSTA VARTEN [Suspect]
     Route: 042
     Dates: start: 20121214, end: 20130308
  7. SENDOXAN 1000 MG INJEKTIOKUIVA-AINE, LIUOSTA VARTEN [Suspect]
     Route: 042
     Dates: start: 20121214
  8. BLEOMYCIN 15 000 KY INJEKTIOKUIVA-AINE/INFUUSIOKUIVA-AINE LIUOSTA VART [Suspect]
     Indication: HODGKIN^S DISEASE
     Route: 042
     Dates: start: 20121018, end: 20121126
  9. ADRIAMYCIN [Suspect]
     Indication: HODGKIN^S DISEASE
     Dosage: 45-90 MG
     Route: 042
     Dates: start: 20121018, end: 20130308
  10. VELBE [Suspect]
     Indication: HODGKIN^S DISEASE
     Route: 042
     Dates: start: 20121018, end: 20121126
  11. DACATIC [Suspect]
     Indication: HODGKIN^S DISEASE
     Route: 042
     Dates: start: 20121018, end: 20121126
  12. ONCOVIN [Suspect]
     Indication: HODGKIN^S DISEASE
     Route: 042
     Dates: start: 20121214, end: 20130308
  13. PREDNISON [Suspect]
     Indication: HODGKIN^S DISEASE
     Route: 048
     Dates: start: 20121214
  14. SOMAC [Concomitant]
     Indication: PROPHYLAXIS AGAINST GASTROINTESTINAL ULCER
     Route: 048
     Dates: start: 20121018
  15. BISOPROLOL ACTAVIS [Concomitant]
     Indication: HYPERTENSION
     Route: 048
  16. THYROXIN [Concomitant]
     Indication: THYROXINE DECREASED
     Route: 048
  17. ZARZIO [Concomitant]
     Indication: COLONY STIMULATING FACTOR THERAPY
     Route: 058
     Dates: start: 20121214, end: 20130315
  18. KLEXANE [Concomitant]
     Indication: ANTICOAGULANT THERAPY
     Route: 058

REACTIONS (5)
  - Epstein-Barr viraemia [Recovered/Resolved]
  - Neutropenia [Unknown]
  - Gait disturbance [Not Recovered/Not Resolved]
  - Asthenia [Not Recovered/Not Resolved]
  - Peripheral sensory neuropathy [Not Recovered/Not Resolved]
